FAERS Safety Report 21662929 (Version 1)
Quarter: 2022Q4

REPORT INFORMATION
  Report Type: Spontaneous
  Country: US (occurrence: None)
  Receive Date: 20221129
  Receipt Date: 20221129
  Transmission Date: 20230113
  Serious: Yes (Hospitalization)
  Sender: FDA-Public Use
  Company Number: None

PATIENT
  Age: 49 Year
  Sex: Female

DRUGS (1)
  1. FORTEO [Suspect]
     Active Substance: TERIPARATIDE
     Indication: Post procedural hypoparathyroidism
     Dosage: OTHER STRENGTH : 600MCG/2.4ML;?FREQUENCY : TWICE A DAY;?
     Route: 058

REACTIONS (3)
  - Hypocalcaemia [None]
  - Product use issue [None]
  - Pollakiuria [None]

NARRATIVE: CASE EVENT DATE: 20221101
